FAERS Safety Report 23267248 (Version 1)
Quarter: 2023Q4

REPORT INFORMATION
  Report Type: Spontaneous
  Country: US (occurrence: None)
  Receive Date: 20231205
  Receipt Date: 20231205
  Transmission Date: 20240110
  Serious: Yes (Hospitalization)
  Sender: FDA-Public Use
  Company Number: None

PATIENT
  Sex: Male

DRUGS (2)
  1. PIRFENIDONE [Suspect]
     Active Substance: PIRFENIDONE
     Indication: Idiopathic pulmonary fibrosis
     Dosage: FREQUENCY : AS DIRECTED;  WITH MEALS?
     Route: 048
     Dates: start: 20231028
  2. PIRFENIDONE [Suspect]
     Active Substance: PIRFENIDONE
     Dosage: FREQUENCY : AS DIRECTED;?
     Route: 048

REACTIONS (1)
  - Hospitalisation [None]
